FAERS Safety Report 8912482 (Version 2)
Quarter: 2012Q4

REPORT INFORMATION
  Report Type: 
  Country: JP (occurrence: JP)
  Receive Date: 20121116
  Receipt Date: 20121126
  Transmission Date: 20130627
  Serious: Yes (Hospitalization)
  Sender: FDA-Public Use
  Company Number: JP-ROCHE-1155103

PATIENT
  Sex: Female

DRUGS (8)
  1. HERCEPTIN [Suspect]
     Indication: BREAST CANCER METASTATIC
     Dosage: Dosage is uncertain.
     Route: 041
  2. HERCEPTIN [Suspect]
     Indication: BREAST CANCER METASTATIC
     Dosage: Dosage is uncertain.
     Route: 041
  3. ENDOXAN [Suspect]
     Indication: BREAST CANCER METASTATIC
     Dosage: Dosage is uncertain.
     Route: 041
  4. EPIRUBICIN HYDROCHLORIDE [Suspect]
     Indication: BREAST CANCER METASTATIC
     Dosage: Dosage is uncertain.
     Route: 041
  5. XELODA [Concomitant]
     Indication: BREAST CANCER METASTATIC
     Dosage: Dosage is uncertain.
     Route: 048
     Dates: start: 200907, end: 201111
  6. XELODA [Concomitant]
     Dosage: Dosage is uncertain.
     Route: 048
  7. TYKERB [Concomitant]
     Indication: BREAST CANCER METASTATIC
     Dosage: Dosage is uncertain.
     Route: 048
     Dates: start: 200907, end: 201111
  8. TYKERB [Concomitant]
     Dosage: Dosage is uncertain.
     Route: 048

REACTIONS (1)
  - Interstitial lung disease [Recovered/Resolved]
